FAERS Safety Report 5264155-1 (Version None)
Quarter: 2007Q1

REPORT INFORMATION
  Report Type: 
  Country: None (occurrence: None)
  Receive Date: 20070313
  Receipt Date: 20070305
  Transmission Date: 20070707
  Serious: Yes (Hospitalization)
  Sender: FDA-Public Use
  Company Number: GB-ROXANE LABORATORIES, INC-2007-BP-03014RO

PATIENT
  Age: 47 Year
  Sex: Female

DRUGS (3)
  1. CYCLOPHOSPHAMIDE [Suspect]
     Indication: CHEMOTHERAPY
  2. EPIRUBICIN [Suspect]
     Indication: CHEMOTHERAPY
  3. PACLITAXEL [Suspect]
     Indication: CHEMOTHERAPY

REACTIONS (5)
  - ALOPECIA [None]
  - ATRIOVENTRICULAR BLOCK [None]
  - ATRIOVENTRICULAR BLOCK COMPLETE [None]
  - ATRIOVENTRICULAR BLOCK SECOND DEGREE [None]
  - BRADYCARDIA [None]
